FAERS Safety Report 5416932-1 (Version None)
Quarter: 2007Q3

REPORT INFORMATION
  Report Type: 
  Country: None (occurrence: None)
  Receive Date: 20070816
  Receipt Date: 20070806
  Transmission Date: 20080115
  Serious: Yes (Hospitalization, Other)
  Sender: FDA-Public Use
  Company Number: US-JNJFOC-20070801672

PATIENT
  Sex: Female

DRUGS (17)
  1. DURAGESIC-100 [Suspect]
     Indication: PAIN
     Route: 062
  2. SKELAXIN [Concomitant]
     Indication: NEUROPATHY
     Dosage: AS NEEDED
     Route: 048
  3. LYRICA [Concomitant]
     Indication: NEUROPATHY
     Route: 048
  4. ACTOS [Concomitant]
     Indication: DIABETES MELLITUS
     Route: 048
  5. PREDNISONE TAB [Concomitant]
     Indication: ARTHRITIS
     Route: 048
  6. TRENTAL [Concomitant]
     Indication: ARTHRITIS
     Route: 048
  7. CYMBALTA [Concomitant]
     Indication: DEPRESSION
     Route: 048
  8. FOLIC ACID [Concomitant]
     Indication: ARTHRITIS
     Route: 048
  9. REGLAN [Concomitant]
     Dosage: BEFORE MEALS
     Route: 048
  10. SYNTHROID [Concomitant]
     Indication: THYROID DISORDER
     Route: 048
  11. LASIX [Concomitant]
     Indication: DYSURIA
     Route: 048
  12. METHOTREXATE [Concomitant]
     Indication: ARTHRITIS
     Dosage: ON SATURDAY
     Route: 048
  13. MICRO-K [Concomitant]
     Dosage: ON SATURDAY
     Route: 048
  14. INSULIN [Concomitant]
     Indication: DIABETES MELLITUS
     Dosage: AM AND PM
     Route: 058
  15. LORTAB [Concomitant]
     Indication: PAIN
     Dosage: AS NEEDED
     Route: 048
  16. AMBIEN [Concomitant]
     Dosage: AT BEDTIME
     Route: 048
  17. WELLBUTRIN [Concomitant]
     Indication: NERVOUSNESS
     Route: 048

REACTIONS (11)
  - CARPAL TUNNEL SYNDROME [None]
  - COLON CANCER [None]
  - EYE DISORDER [None]
  - GALLBLADDER DISORDER [None]
  - INCORRECT DRUG ADMINISTRATION DURATION [None]
  - PAIN IN EXTREMITY [None]
  - PHARMACEUTICAL PRODUCT COMPLAINT [None]
  - PRURITUS GENERALISED [None]
  - SURGERY [None]
  - THYROID DISORDER [None]
  - WRONG TECHNIQUE IN DRUG USAGE PROCESS [None]
